FAERS Safety Report 13476500 (Version 1)
Quarter: 2017Q2

REPORT INFORMATION
  Report Type: Spontaneous
  Country: US (occurrence: US)
  Receive Date: 20170424
  Receipt Date: 20170424
  Transmission Date: 20170830
  Serious: No
  Sender: FDA-Public Use
  Company Number: US-ABBVIE-17P-163-1920230-00

PATIENT
  Age: 8 Year
  Sex: Female

DRUGS (1)
  1. LUPRON DEPOT-PED [Suspect]
     Active Substance: LEUPROLIDE ACETATE
     Indication: PRECOCIOUS PUBERTY
     Route: 030

REACTIONS (7)
  - Hypersensitivity [Unknown]
  - Pruritus [Recovered/Resolved]
  - Mobility decreased [Recovered/Resolved]
  - Injection site induration [Unknown]
  - Injection site erythema [Unknown]
  - Injection site induration [Recovered/Resolved]
  - Urticaria [Recovered/Resolved]
